FAERS Safety Report 4704580-8 (Version None)
Quarter: 2005Q2

REPORT INFORMATION
  Report Type: 
  Country: None (occurrence: None)
  Receive Date: 20050629
  Receipt Date: 20050622
  Transmission Date: 20051028
  Serious: Yes (Hospitalization)
  Sender: FDA-Public Use
  Company Number: 2005079270

PATIENT
  Age: 58 Year
  Sex: Male

DRUGS (8)
  1. CELEBREX [Suspect]
     Indication: ILL-DEFINED DISORDER
     Dosage: (100 MG), ORAL
     Route: 048
  2. LISINOPRIL [Concomitant]
  3. PROPRANOLOL [Concomitant]
  4. PAROXETINE (PARTOXETINE) [Concomitant]
  5. VALPROIC ACID [Concomitant]
  6. SIMVASTATIN [Concomitant]
  7. METFORMIN (METFORMIN) [Concomitant]
  8. PIROXICAM [Concomitant]

REACTIONS (9)
  - AMNESIA [None]
  - C-REACTIVE PROTEIN INCREASED [None]
  - DEPRESSED LEVEL OF CONSCIOUSNESS [None]
  - FATIGUE [None]
  - INFECTION [None]
  - PYREXIA [None]
  - SINUSITIS [None]
  - SOMNOLENCE [None]
  - URINARY INCONTINENCE [None]
